FAERS Safety Report 24889390 (Version 1)
Quarter: 2025Q1

REPORT INFORMATION
  Report Type: Spontaneous
  Country: ZA (occurrence: ZA)
  Receive Date: 20250127
  Receipt Date: 20250127
  Transmission Date: 20250409
  Serious: Yes (Hospitalization, Disabling, Other)
  Sender: AMGEN
  Company Number: ZA-SERVIER-S24018362

PATIENT
  Age: 76 Year
  Sex: Female

DRUGS (28)
  1. IVABRADINE HYDROCHLORIDE [Suspect]
     Active Substance: IVABRADINE HYDROCHLORIDE
     Indication: Angina pectoris
     Dosage: 5 MG, BID
     Route: 048
  2. Allergex [Concomitant]
     Indication: Hypersensitivity
     Route: 048
  3. BUTYLSCOPOLAMINE BROMIDE [Concomitant]
     Active Substance: BUTYLSCOPOLAMINE BROMIDE
     Indication: Product used for unknown indication
     Route: 048
  4. Omiflux [Concomitant]
     Indication: Ulcer
     Route: 048
  5. FUROSEMIDE [Concomitant]
     Active Substance: FUROSEMIDE
     Indication: Hypertension
     Dosage: 40 MG, QD
     Route: 048
  6. Lipogen [Concomitant]
     Indication: Blood cholesterol abnormal
     Dosage: 40 MG, QD
     Route: 048
  7. BISOPROLOL FUMARATE [Concomitant]
     Active Substance: BISOPROLOL FUMARATE
     Indication: Hypertension
     Dosage: 2.5 MG, QD
     Route: 048
  8. TELMISARTAN [Concomitant]
     Active Substance: TELMISARTAN
     Indication: Hypertension
     Dosage: 40 MG, QD
     Route: 048
  9. ESOMEPRAZOLE MAGNESIUM [Concomitant]
     Active Substance: ESOMEPRAZOLE MAGNESIUM
     Indication: Ulcer
     Dosage: 40 MG, QD
     Route: 048
  10. MINERALS\VITAMINS [Concomitant]
     Active Substance: MINERALS\VITAMINS
     Indication: Product used for unknown indication
     Dosage: 1 DF, QD
     Route: 048
  11. DORMONOCT [Concomitant]
     Active Substance: LOPRAZOLAM
     Indication: Sleep disorder
     Dosage: 2 MG, QD
     Route: 048
  12. ANTIPEOL [Concomitant]
     Indication: Product used for unknown indication
     Route: 048
  13. LASIX [Concomitant]
     Active Substance: FUROSEMIDE
     Indication: Hypertension
     Dosage: 20 MG, TID
     Route: 048
  14. HYDROCHLOROTHIAZIDE [Concomitant]
     Active Substance: HYDROCHLOROTHIAZIDE
     Indication: Hypertension
     Dosage: 25 MG, QD
     Route: 048
  15. Spiractin [Concomitant]
     Indication: Hypertension
     Dosage: 25 MG, QD
     Route: 048
  16. NYSTATIN [Concomitant]
     Active Substance: NYSTATIN
     Indication: Product used for unknown indication
     Dosage: 100000 IU, UNK
     Route: 048
  17. ROSUVASTATIN [Concomitant]
     Active Substance: ROSUVASTATIN
     Indication: Blood cholesterol abnormal
     Dosage: 40 MG, QD
     Route: 048
  18. MAGNESIUM CHLORIDE [Concomitant]
     Active Substance: MAGNESIUM CHLORIDE
     Indication: Product used for unknown indication
     Dosage: UNK
     Route: 048
  19. HYDRALAZINE [Concomitant]
     Active Substance: HYDRALAZINE HYDROCHLORIDE
     Indication: Hypertension
     Dosage: 50 MG, UNK
     Route: 048
  20. CARDURA XL [Concomitant]
     Active Substance: DOXAZOSIN MESYLATE
     Indication: Benign prostatic hyperplasia
     Dosage: 4 MG, QD
     Route: 048
  21. POTASSIUM CHLORIDE [Concomitant]
     Active Substance: POTASSIUM CHLORIDE
     Indication: Hypokalaemia
     Dosage: 600 MG, QD
     Route: 048
  22. TORSEMIDE [Concomitant]
     Active Substance: TORSEMIDE
     Indication: Hypertension
     Route: 048
  23. ANGELIQ [Concomitant]
     Active Substance: DROSPIRENONE\ESTRADIOL
     Indication: Hormone replacement therapy
     Dosage: UNK
     Route: 048
  24. DICLOFENAC SODIUM [Concomitant]
     Active Substance: DICLOFENAC SODIUM
     Indication: Pain
     Dosage: 50 MG, QD
     Route: 048
  25. ZOLPIDEM TARTRATE [Concomitant]
     Active Substance: ZOLPIDEM TARTRATE
     Indication: Sleep disorder
     Dosage: 10 MG, QD
     Route: 048
  26. BISOPROLOL FUMARATE\HYDROCHLOROTHIAZIDE [Concomitant]
     Active Substance: BISOPROLOL FUMARATE\HYDROCHLOROTHIAZIDE
     Indication: Hypertension
     Dosage: UNK
     Route: 048
  27. LOSARTAN POTASSIUM [Concomitant]
     Active Substance: LOSARTAN POTASSIUM
     Indication: Hypertension
     Dosage: 100 MG, QD
     Route: 048
  28. AMLODIPINE BESYLATE [Concomitant]
     Active Substance: AMLODIPINE BESYLATE
     Indication: Hypertension
     Dosage: 5 MG, QD
     Route: 048

REACTIONS (5)
  - Gait disturbance [Unknown]
  - Myocardial infarction [Unknown]
  - Dialysis [Unknown]
  - Gallbladder operation [Unknown]
  - Back pain [Unknown]
